FAERS Safety Report 5194381-1 (Version None)
Quarter: 2006Q4

REPORT INFORMATION
  Report Type: 
  Country: None (occurrence: None)
  Receive Date: 20061228
  Receipt Date: 20061218
  Transmission Date: 20070319
  Serious: Yes (Hospitalization)
  Sender: FDA-Public Use
  Company Number: GB-PFIZER INC-2006154839

PATIENT
  Sex: Male

DRUGS (8)
  1. SU-011,248 [Suspect]
     Indication: GASTROINTESTINAL STROMAL TUMOUR
     Route: 048
  2. SU-011,248 [Suspect]
     Route: 048
     Dates: start: 20060809, end: 20061213
  3. TRAMADOL HCL [Concomitant]
     Route: 048
  4. ACETAMINOPHEN [Concomitant]
     Route: 048
     Dates: start: 20060623
  5. MOVICOL [Concomitant]
     Route: 048
  6. LEVOTHYROXINE SODIUM [Concomitant]
     Route: 048
  7. LACTULOSE [Concomitant]
     Route: 048
  8. GLICLAZIDE [Concomitant]
     Route: 048

REACTIONS (1)
  - PAIN [None]
